FAERS Safety Report 8168332-1 (Version None)
Quarter: 2012Q1

REPORT INFORMATION
  Report Type: 
  Country: None (occurrence: None)
  Receive Date: 20120227
  Receipt Date: 20120221
  Transmission Date: 20120608
  Serious: Yes (Hospitalization, Disabling, Other)
  Sender: FDA-Public Use
  Company Number: US-MERCK-1108USA03121

PATIENT
  Age: 51 Year
  Sex: Female
  Weight: 75 kg

DRUGS (4)
  1. FOSAMAX [Suspect]
     Indication: BONE DENSITY DECREASED
     Route: 048
     Dates: start: 20010601
  2. FOSAMAX PLUS D [Suspect]
     Indication: PROPHYLAXIS
     Route: 048
     Dates: start: 20061101, end: 20080801
  3. INDAPAMIDE [Concomitant]
     Route: 065
     Dates: start: 20000228
  4. ACTONEL [Suspect]
     Route: 065

REACTIONS (28)
  - TRIGGER FINGER [None]
  - BLOOD POTASSIUM DECREASED [None]
  - CHOLELITHIASIS [None]
  - BONE DISORDER [None]
  - MYOSITIS OSSIFICANS [None]
  - BUNION [None]
  - SKELETAL INJURY [None]
  - ADHESION [None]
  - ANAEMIA POSTOPERATIVE [None]
  - FLUID RETENTION [None]
  - OSTEOPOROSIS [None]
  - INCREASED TENDENCY TO BRUISE [None]
  - HYPOCALCAEMIA [None]
  - PAIN [None]
  - JOINT EFFUSION [None]
  - HYPOALBUMINAEMIA [None]
  - WOUND COMPLICATION [None]
  - ECCHYMOSIS [None]
  - HAEMATOMA [None]
  - OSTEOPENIA [None]
  - OSTEOARTHRITIS [None]
  - POST PROCEDURAL HAEMORRHAGE [None]
  - LIMB ASYMMETRY [None]
  - RESPIRATORY DISORDER [None]
  - FEMUR FRACTURE [None]
  - MUSCULOSKELETAL DISORDER [None]
  - HYPERTENSION [None]
  - NEPHROLITHIASIS [None]
